FAERS Safety Report 6802921-9 (Version None)
Quarter: 2010Q2

REPORT INFORMATION
  Report Type: 
  Country: None (occurrence: None)
  Receive Date: 20100628
  Receipt Date: 20100617
  Transmission Date: 20101027
  Serious: Yes (Other)
  Sender: FDA-Public Use
  Company Number: CA-JNJFOC-20100606277

PATIENT
  Sex: Male
  Weight: 116 kg

DRUGS (2)
  1. REMICADE [Suspect]
     Indication: DRUG USE FOR UNKNOWN INDICATION
     Dosage: WEEK 0, 2, 6
     Route: 042
  2. REMICADE [Suspect]
     Dosage: 9 INFUSIONS
     Route: 042

REACTIONS (1)
  - LUPUS-LIKE SYNDROME [None]
